FAERS Safety Report 9380961 (Version 2)
Quarter: 2013Q3

REPORT INFORMATION
  Report Type: Report from Study
  Country: BR (occurrence: BR)
  Receive Date: 20130703
  Receipt Date: 20130828
  Transmission Date: 20140515
  Serious: Yes (Hospitalization)
  Sender: FDA-Public Use
  Company Number: BR-ROCHE-1243527

PATIENT
  Age: 54 Year
  Sex: Female
  Weight: 65 kg

DRUGS (3)
  1. ACTEMRA [Suspect]
     Indication: RHEUMATOID ARTHRITIS
     Dosage: MOST RECENT DOSE RECEIVED ON 23/MAY/2013.
     Route: 042
     Dates: start: 20120601
  2. ACTEMRA [Suspect]
     Route: 042
     Dates: start: 20130730
  3. ALENDRONATE [Concomitant]
     Indication: OSTEOPOROSIS

REACTIONS (2)
  - Rheumatoid arthritis [Recovered/Resolved]
  - Pain [Unknown]
